FAERS Safety Report 7475257-3 (Version None)
Quarter: 2011Q2

REPORT INFORMATION
  Report Type: 
  Country: None (occurrence: None)
  Receive Date: 20110512
  Receipt Date: 20110427
  Transmission Date: 20111010
  Serious: No
  Sender: FDA-Public Use
  Company Number: US-B.I. PHARMACEUTICALS,INC./RIDGEFIELD-2011-BP-11951BP

PATIENT
  Sex: Female

DRUGS (11)
  1. PRADAXA [Suspect]
     Indication: ATRIAL FIBRILLATION
     Dosage: 300 MG
     Route: 048
     Dates: start: 20110301
  2. HYDROCHLOROTHIAZIDE [Concomitant]
     Indication: FLUID IMBALANCE
     Dosage: 12.5 MG
  3. METAMUCIL-2 [Concomitant]
     Indication: PROPHYLAXIS
     Dosage: 2000 MG
  4. SYNTHROID [Concomitant]
     Indication: HYPOTHYROIDISM
     Dosage: 50 MCG
  5. CLARITIN [Concomitant]
     Indication: MULTIPLE ALLERGIES
     Dosage: 10 MG
  6. NASONEX [Concomitant]
     Indication: MULTIPLE ALLERGIES
  7. LOVAZA [Concomitant]
     Indication: LIPIDS INCREASED
     Dosage: 2 G
  8. PREVACID [Concomitant]
     Indication: GASTROOESOPHAGEAL REFLUX DISEASE
  9. CALCIUM CITRATE [Concomitant]
     Indication: SUPPLEMENTATION THERAPY
     Dosage: 2000 MG
  10. BYSTOLIC [Concomitant]
     Indication: ATRIAL FIBRILLATION
     Dosage: 7.5 MG
  11. LASIX [Concomitant]
     Indication: FLUID IMBALANCE
     Dosage: 40 MG

REACTIONS (4)
  - OESOPHAGEAL PAIN [None]
  - GASTROOESOPHAGEAL REFLUX DISEASE [None]
  - NAUSEA [None]
  - DIARRHOEA [None]
